FAERS Safety Report 12095717 (Version 1)
Quarter: 2016Q1

REPORT INFORMATION
  Report Type: Spontaneous
  Country: US (occurrence: US)
  Receive Date: 20160220
  Receipt Date: 20160220
  Transmission Date: 20160526
  Serious: No
  Sender: FDA-Public Use
  Company Number: US-AUROBINDO-AUR-APL-2015-09720

PATIENT
  Sex: Female

DRUGS (1)
  1. DULOXETINE DELAYED-RELEASE CAPSULES USP 30 MG [Suspect]
     Active Substance: DULOXETINE
     Indication: PRODUCT USED FOR UNKNOWN INDICATION
     Dosage: 1 DF, DAILY
     Route: 048
     Dates: start: 20151020

REACTIONS (10)
  - Social avoidant behaviour [Unknown]
  - Bone pain [Unknown]
  - Feeling abnormal [Unknown]
  - Abdominal pain upper [Recovering/Resolving]
  - Nausea [Unknown]
  - Decreased appetite [Unknown]
  - Pain [Unknown]
  - Fibromyalgia [Unknown]
  - Insomnia [Unknown]
  - Headache [Unknown]
